FAERS Safety Report 7104338-9 (Version None)
Quarter: 2010Q4

REPORT INFORMATION
  Report Type: 
  Country: None (occurrence: None)
  Receive Date: 20101115
  Receipt Date: 20100628
  Transmission Date: 20110411
  Serious: No
  Sender: FDA-Public Use
  Company Number: US-ALLERGAN-1008503US

PATIENT
  Sex: Male

DRUGS (1)
  1. BOTOXA? [Suspect]
     Indication: BLEPHAROSPASM
     Dosage: UNK
     Route: 030

REACTIONS (1)
  - DIPLOPIA [None]
